FAERS Safety Report 15462170 (Version 3)
Quarter: 2018Q4

REPORT INFORMATION
  Report Type: Spontaneous
  Country: JP (occurrence: JP)
  Receive Date: 20181004
  Receipt Date: 20181015
  Transmission Date: 20190204
  Serious: Yes (Hospitalization, Other)
  Sender: FDA-Public Use
  Company Number: JP-ROCHE-2191960

PATIENT
  Age: 67 Year
  Sex: Male

DRUGS (3)
  1. VALIXA [Suspect]
     Active Substance: VALGANCICLOVIR
     Indication: CYTOMEGALOVIRUS INFECTION
     Route: 065
  2. DENOSINE (JAPAN) [Suspect]
     Active Substance: GANCICLOVIR
     Indication: CYTOMEGALOVIRUS INFECTION
     Route: 041
     Dates: start: 20180824, end: 20180911
  3. FOSCAVIR [Concomitant]
     Active Substance: FOSCARNET SODIUM
     Route: 065

REACTIONS (6)
  - Dermatomyositis [Unknown]
  - Bone marrow failure [Recovered/Resolved]
  - Cytomegalovirus infection [Unknown]
  - Immunosuppression [Unknown]
  - Off label use [Unknown]
  - Intentional product use issue [Unknown]

NARRATIVE: CASE EVENT DATE: 20180903
